FAERS Safety Report 8463852-4 (Version None)
Quarter: 2012Q2

REPORT INFORMATION
  Report Type: 
  Country: None (occurrence: None)
  Receive Date: 20120625
  Receipt Date: 20120612
  Transmission Date: 20120825
  Serious: Yes (Other)
  Sender: FDA-Public Use
  Company Number: JP-AMGEN-JPNSP2012037817

PATIENT
  Age: 59 Year
  Sex: Female
  Weight: 52.2 kg

DRUGS (4)
  1. ENBREL [Suspect]
     Indication: PRODUCT USED FOR UNKNOWN INDICATION
     Dosage: 25 MG, WEEKLY
     Route: 058
     Dates: start: 20100918
  2. PREDNISOLONE [Concomitant]
     Dosage: 5 MG, 1X/DAY
     Route: 048
     Dates: start: 20070907
  3. PREDNISOLONE [Concomitant]
     Dosage: 2 MG, 1X/DAY
     Route: 048
     Dates: start: 20101217
  4. PREDNISOLONE [Concomitant]
     Dosage: 3 MG, 1X/DAY
     Route: 048

REACTIONS (2)
  - CARDIAC FAILURE [None]
  - NEPHROTIC SYNDROME [None]
